FAERS Safety Report 6948359-5 (Version None)
Quarter: 2010Q3

REPORT INFORMATION
  Report Type: 
  Country: None (occurrence: None)
  Receive Date: 20100828
  Receipt Date: 20100127
  Transmission Date: 20110219
  Serious: No
  Sender: FDA-Public Use
  Company Number: US-ABBOTT-09P-163-0605927-00

PATIENT
  Sex: Male
  Weight: 111.23 kg

DRUGS (15)
  1. NIASPAN [Suspect]
     Indication: HIGH DENSITY LIPOPROTEIN DECREASED
     Dates: start: 20080101, end: 20090101
  2. NIASPAN [Suspect]
     Indication: BLOOD TRIGLYCERIDES INCREASED
  3. TRILIPIX [Suspect]
     Indication: HIGH DENSITY LIPOPROTEIN DECREASED
     Dates: start: 20090201, end: 20091019
  4. TRILIPIX [Suspect]
     Indication: BLOOD TRIGLYCERIDES INCREASED
  5. CRESTOR [Concomitant]
     Indication: HIGH DENSITY LIPOPROTEIN DECREASED
  6. CRESTOR [Concomitant]
     Indication: BLOOD TRIGLYCERIDES INCREASED
  7. FUROSEMIDE [Concomitant]
     Indication: CARDIAC FAILURE CONGESTIVE
  8. XANAX [Concomitant]
     Indication: ANXIETY
  9. DIGOXIN [Concomitant]
     Indication: CARDIAC FAILURE CONGESTIVE
  10. ALLOPURINOL [Concomitant]
     Indication: NEPHROLITHIASIS
  11. FISH OIL [Concomitant]
     Indication: MEDICAL DIET
  12. AVAPRO [Concomitant]
     Indication: HYPERTENSION
  13. COREG [Concomitant]
     Indication: HYPERTENSION
  14. POTASSIUM CITRATE [Concomitant]
     Indication: MINERAL SUPPLEMENTATION
  15. ASPIRIN [Concomitant]
     Indication: CARDIOVASCULAR EVENT PROPHYLAXIS

REACTIONS (3)
  - BACK PAIN [None]
  - RASH [None]
  - URTICARIA [None]
